FAERS Safety Report 6760411-6 (Version None)
Quarter: 2010Q2

REPORT INFORMATION
  Report Type: 
  Country: None (occurrence: None)
  Receive Date: 20100608
  Receipt Date: 20100525
  Transmission Date: 20101027
  Serious: Yes (Hospitalization, Other)
  Sender: FDA-Public Use
  Company Number: PHHY2010BE32475

PATIENT
  Sex: Male

DRUGS (11)
  1. AFINITOR [Suspect]
     Indication: RENAL CELL CARCINOMA
     Dosage: 5 MG, UNK
     Route: 048
     Dates: start: 20100430, end: 20100517
  2. ADALAT [Concomitant]
     Dosage: 30 MG, BID
  3. ASAFLOW [Concomitant]
  4. FOLAVIT [Concomitant]
  5. THYROXINE I [Concomitant]
  6. XANAX [Concomitant]
     Dosage: 0.5 MG, DAILY
  7. LORAZEPAM [Concomitant]
  8. MAGNESIUM [Concomitant]
  9. EFFEXOR [Concomitant]
  10. D-CURE [Concomitant]
     Dosage: ONCE WEEKLY
  11. ARANESP [Concomitant]

REACTIONS (8)
  - BLOOD ALKALINE PHOSPHATASE INCREASED [None]
  - BLOOD CREATININE INCREASED [None]
  - BLOOD FIBRINOGEN INCREASED [None]
  - BLOOD LACTATE DEHYDROGENASE INCREASED [None]
  - CREATININE RENAL CLEARANCE DECREASED [None]
  - GAMMA-GLUTAMYLTRANSFERASE INCREASED [None]
  - HAEMOGLOBIN DECREASED [None]
  - RENAL FAILURE [None]
